FAERS Safety Report 24540846 (Version 1)
Quarter: 2024Q4

REPORT INFORMATION
  Report Type: Spontaneous
  Country: FR (occurrence: FR)
  Receive Date: 20241023
  Receipt Date: 20241023
  Transmission Date: 20250115
  Serious: Yes (Hospitalization, Other)
  Sender: pharmaAND
  Company Number: FR-AFSSAPS-NY2024001144

PATIENT
  Age: 67 Year
  Sex: Male
  Weight: 76.7 kg

DRUGS (10)
  1. PEGINTERFERON ALFA-2A [Suspect]
     Active Substance: PEGINTERFERON ALFA-2A
     Indication: Cutaneous T-cell lymphoma stage IV
     Route: 058
     Dates: start: 20240411, end: 20240808
  2. PEGINTERFERON ALFA-2A [Suspect]
     Active Substance: PEGINTERFERON ALFA-2A
     Dosage: 135 ?G, 1X/WEEK
     Route: 058
     Dates: start: 20231219, end: 20240311
  3. PEGINTERFERON ALFA-2A [Suspect]
     Active Substance: PEGINTERFERON ALFA-2A
     Dosage: 90 ?G, 1X/WEEK
     Route: 058
     Dates: start: 20231205, end: 20231219
  4. KARDEGIC [Concomitant]
     Active Substance: ASPIRIN DL-LYSINE
     Indication: Cardiovascular event prophylaxis
     Dosage: 75 MG, 1X/DAY
     Route: 048
  5. DESLORATADINE [Concomitant]
     Active Substance: DESLORATADINE
     Indication: Pruritus
     Dosage: 5 MG, 1X/DAY
     Route: 048
  6. ROSUVASTATIN [Concomitant]
     Active Substance: ROSUVASTATIN
     Indication: Hypercholesterolaemia
     Dosage: 10 MG, 1X/DAY
     Route: 048
  7. UVADEX [Concomitant]
     Active Substance: METHOXSALEN
     Indication: Cutaneous T-cell lymphoma stage IV
     Dosage: 1 DOSAGE FORM, EVERY 3 WEEKS
     Route: 050
     Dates: start: 20231023, end: 20240311
  8. HYDROXYZINE HYDROCHLORIDE [Concomitant]
     Active Substance: HYDROXYZINE HYDROCHLORIDE
     Indication: Pruritus
     Dosage: 30 MG, 1X/DAY
     Route: 048
  9. RAMIPRIL [Concomitant]
     Active Substance: RAMIPRIL
     Indication: Hypertension
     Dosage: 10 MG, 1X/DAY
     Route: 048
  10. FOLIC ACID [Concomitant]
     Active Substance: FOLIC ACID
     Indication: Vitamin supplementation
     Dosage: 10 MG, 1X/DAY
     Route: 048

REACTIONS (4)
  - Hepatic cytolysis [Recovered/Resolved]
  - Intestinal infarction [Recovered/Resolved]
  - Off label use [Recovered/Resolved]
  - Cutaneous T-cell lymphoma stage IV [Recovered/Resolved]

NARRATIVE: CASE EVENT DATE: 20231219
